FAERS Safety Report 6493252-8 (Version None)
Quarter: 2009Q4

REPORT INFORMATION
  Report Type: 
  Country: None (occurrence: None)
  Receive Date: 20091214
  Receipt Date: 20091203
  Transmission Date: 20100525
  Serious: Yes (Other)
  Sender: FDA-Public Use
  Company Number: BR-ROCHE-672990

PATIENT
  Sex: Female
  Weight: 54 kg

DRUGS (1)
  1. ROACUTAN [Suspect]
     Indication: ACNE
     Dosage: DOSE: 2 CAPSULES OF 20 MG DAILY
     Route: 065
     Dates: start: 20091001, end: 20091128

REACTIONS (5)
  - CRYING [None]
  - DIZZINESS [None]
  - FEAR [None]
  - FEELING COLD [None]
  - SENSATION OF BLOOD FLOW [None]
